FAERS Safety Report 15309423 (Version 1)
Quarter: 2018Q3

REPORT INFORMATION
  Report Type: Report from Study
  Country: None (occurrence: US)
  Receive Date: 20180823
  Receipt Date: 20180823
  Transmission Date: 20181010
  Serious: Yes (Hospitalization, Other)
  Sender: FDA-Public Use
  Company Number: US-ABBVIE-18K-163-2230059-00

PATIENT
  Age: 72 Year
  Sex: Female
  Weight: 66.28 kg

DRUGS (6)
  1. FOLIC ACID. [Concomitant]
     Active Substance: FOLIC ACID
     Indication: VITAMIN SUPPLEMENTATION
  2. HUMIRA [Suspect]
     Active Substance: ADALIMUMAB
     Indication: CROHN^S DISEASE
     Route: 058
     Dates: start: 2014, end: 201806
  3. HUMIRA [Suspect]
     Active Substance: ADALIMUMAB
     Route: 058
     Dates: start: 201807
  4. NORVASC [Concomitant]
     Active Substance: AMLODIPINE BESYLATE
     Indication: HYPERTENSION
  5. ZYRTEC [Concomitant]
     Active Substance: CETIRIZINE HYDROCHLORIDE
     Indication: HYPERSENSITIVITY
  6. VITAMIN B [Concomitant]
     Active Substance: VITAMIN B
     Indication: VITAMIN SUPPLEMENTATION

REACTIONS (13)
  - Lung hernia [Unknown]
  - Procedural pain [Recovering/Resolving]
  - Ligament sprain [Recovering/Resolving]
  - Fall [Recovered/Resolved]
  - Dyspnoea [Recovering/Resolving]
  - Oesophageal discomfort [Unknown]
  - Hiatus hernia [Recovering/Resolving]
  - Dysphagia [Recovering/Resolving]
  - Chest discomfort [Recovering/Resolving]
  - Arthralgia [Recovering/Resolving]
  - Ankle fracture [Unknown]
  - Ankle fracture [Recovering/Resolving]
  - Oesophageal disorder [Recovering/Resolving]

NARRATIVE: CASE EVENT DATE: 2017
